FAERS Safety Report 7520392-4 (Version None)
Quarter: 2011Q2

REPORT INFORMATION
  Report Type: 
  Country: None (occurrence: None)
  Receive Date: 20110602
  Receipt Date: 20110517
  Transmission Date: 20111010
  Serious: Yes (Life-Threatening, Hospitalization, Other)
  Sender: FDA-Public Use
  Company Number: US-BAYER-201022332NA

PATIENT
  Age: 47 Year
  Sex: Female
  Weight: 95 kg

DRUGS (6)
  1. YASMIN [Suspect]
     Indication: CONTRACEPTION
     Dosage: 1 TAB / DAY
     Dates: start: 20020101, end: 20061201
  2. YASMIN [Suspect]
     Indication: PREMENSTRUAL SYNDROME
  3. NASAL SPRAY [Concomitant]
  4. VITAMIN B6 [Concomitant]
     Route: 048
  5. VITAMINS [Concomitant]
     Route: 048
  6. XENICAL [Concomitant]
     Dosage: DAILY DOSE 120 MG
     Route: 048

REACTIONS (4)
  - CHOLECYSTITIS CHRONIC [None]
  - GALLBLADDER DISORDER [None]
  - INJURY [None]
  - PAIN [None]
